FAERS Safety Report 4597468-7 (Version None)
Quarter: 2005Q1

REPORT INFORMATION
  Report Type: 
  Country: None (occurrence: None)
  Receive Date: 20050303
  Receipt Date: 20020124
  Transmission Date: 20050727
  Serious: Yes (Hospitalization)
  Sender: FDA-Public Use
  Company Number: ES-ROCHE-305648

PATIENT
  Age: 70 Year
  Sex: Female
  Weight: 78 kg

DRUGS (13)
  1. DACLIZUMAB [Suspect]
     Route: 042
     Dates: start: 20011023, end: 20011023
  2. DACLIZUMAB [Suspect]
     Route: 042
     Dates: start: 20011106, end: 20011220
  3. MYCOPHENOLATE MOFETIL [Suspect]
     Route: 048
     Dates: start: 20011023
  4. MYCOPHENOLATE MOFETIL [Suspect]
     Dosage: DIVIDED INTO 3 DOSES PER DAY AT 750MG, 750MG AND 500MG.
     Route: 048
  5. CYCLOSPORINE [Suspect]
     Route: 065
     Dates: start: 20011023
  6. CYCLOSPORINE [Suspect]
     Route: 065
     Dates: start: 20011214
  7. CYCLOSPORINE [Suspect]
     Route: 065
     Dates: start: 20020215
  8. PREDNISONE [Suspect]
     Route: 065
     Dates: start: 20011023
  9. PREDNISONE [Suspect]
     Route: 065
     Dates: start: 20011214
  10. PREDNISONE [Suspect]
     Route: 065
     Dates: start: 20030307
  11. ORFIDAL [Concomitant]
     Dates: start: 20011015
  12. RANITIDINA [Concomitant]
     Dates: start: 20011024, end: 20030916
  13. TENORMIN [Concomitant]
     Dates: start: 20020731

REACTIONS (2)
  - SQUAMOUS CELL CARCINOMA [None]
  - URETHRAL FISTULA [None]
